APPROVED DRUG PRODUCT: GUANABENZ ACETATE
Active Ingredient: GUANABENZ ACETATE
Strength: EQ 8MG BASE
Dosage Form/Route: TABLET;ORAL
Application: A074267 | Product #002
Applicant: ANI PHARMACEUTICALS INC
Approved: Jun 1, 1994 | RLD: No | RS: No | Type: DISCN